FAERS Safety Report 25071735 (Version 1)
Quarter: 2025Q1

REPORT INFORMATION
  Report Type: Spontaneous
  Country: GR (occurrence: GR)
  Receive Date: 20250313
  Receipt Date: 20250313
  Transmission Date: 20250408
  Serious: Yes (Other)
  Sender: Haleon PLC
  Company Number: GR-002147023-NVSC2025GR010526

PATIENT
  Age: 30 Year
  Sex: Female

DRUGS (2)
  1. DICLOFENAC [Suspect]
     Active Substance: DICLOFENAC
     Indication: Dysmenorrhoea
     Dosage: 50 MG, QD
     Route: 048
     Dates: start: 20250117
  2. DICLOFENAC [Suspect]
     Active Substance: DICLOFENAC
     Indication: Dysmenorrhoea
     Dosage: 50 MG, QD
     Route: 048
     Dates: start: 20250117

REACTIONS (4)
  - Dysgeusia [Recovered/Resolved]
  - Dyspepsia [Recovered/Resolved]
  - Vomiting [Recovered/Resolved]
  - Nausea [Recovered/Resolved]

NARRATIVE: CASE EVENT DATE: 20250117
